FAERS Safety Report 8206832-6 (Version None)
Quarter: 2012Q1

REPORT INFORMATION
  Report Type: 
  Country: None (occurrence: None)
  Receive Date: 20120312
  Receipt Date: 20120302
  Transmission Date: 20120608
  Serious: Yes (Death, Hospitalization)
  Sender: FDA-Public Use
  Company Number: US-2011-3438

PATIENT
  Age: 57 Year
  Sex: Male

DRUGS (16)
  1. COMPAZINE [Concomitant]
  2. TESSALON [Concomitant]
  3. ALBUTEROL [Concomitant]
  4. VINORELBINE [Suspect]
     Indication: LUNG CANCER METASTATIC
     Dosage: 49 MG IV
     Route: 042
     Dates: start: 20110629, end: 20111109
  5. BENZONATATE [Concomitant]
  6. SOLU-MEDROL [Concomitant]
  7. RANITIDINE [Concomitant]
  8. DIOVAN [Concomitant]
  9. PHENERGAN EXPECTORANT W/ CODEINE [Concomitant]
  10. CETUXIMAB [Suspect]
     Indication: LUNG CANCER METASTATIC
     Dosage: 780 MG IV
     Route: 042
     Dates: start: 20110629, end: 20111116
  11. ZOFRAN [Concomitant]
  12. DECADRON [Concomitant]
  13. TUSSI-ORGANIDIN [Concomitant]
  14. CISPLATIN [Suspect]
     Indication: LUNG CANCER METASTATIC
     Dosage: 156 MG IV
     Route: 042
     Dates: start: 20110629, end: 20111102
  15. ISOPROTERENOL HCL [Concomitant]
  16. LEVAQUIN [Concomitant]

REACTIONS (3)
  - PNEUMONIA [None]
  - RESPIRATORY DISTRESS [None]
  - PNEUMONITIS [None]
